FAERS Safety Report 5700681-6 (Version None)
Quarter: 2008Q2

REPORT INFORMATION
  Report Type: 
  Country: None (occurrence: None)
  Receive Date: 20080410
  Receipt Date: 20080331
  Transmission Date: 20081010
  Serious: No
  Sender: FDA-Public Use
  Company Number: US-MERCK-0803USA03929

PATIENT
  Age: 56 Year
  Sex: Female

DRUGS (4)
  1. SINGULAIR [Suspect]
     Indication: ASTHMA
     Route: 048
     Dates: start: 20080314, end: 20080316
  2. SINGULAIR [Suspect]
     Indication: HYPERSENSITIVITY
     Route: 048
     Dates: start: 20080314, end: 20080316
  3. SYMBICORT [Concomitant]
     Route: 065
  4. ATROVENT [Concomitant]
     Route: 065

REACTIONS (1)
  - GALLBLADDER DISORDER [None]
